FAERS Safety Report 5200747-3 (Version None)
Quarter: 2006Q4

REPORT INFORMATION
  Report Type: 
  Country: None (occurrence: None)
  Receive Date: 20061016
  Receipt Date: 20060705
  Transmission Date: 20070319
  Serious: No
  Sender: FDA-Public Use
  Company Number: 2006SP002612

PATIENT
  Age: 54 Year
  Sex: Female
  Weight: 71.6683 kg

DRUGS (5)
  1. LUNESTA [Suspect]
     Indication: INSOMNIA
     Dosage: 2 MG; ORAL
     Route: 048
     Dates: start: 20060401
  2. WELLBUTRIN [Suspect]
     Indication: DEPRESSION
     Dosage: 150 MG; QD; ORAL
     Route: 048
     Dates: start: 20060401
  3. INDERAL LA [Concomitant]
  4. ESTROGENIC SUBSTANCE [Concomitant]
  5. VITAMINS [Concomitant]

REACTIONS (1)
  - HALLUCINATION [None]
